FAERS Safety Report 6127538-3 (Version None)
Quarter: 2009Q1

REPORT INFORMATION
  Report Type: 
  Country: None (occurrence: None)
  Receive Date: 20090323
  Receipt Date: 20090316
  Transmission Date: 20090719
  Serious: Yes (Hospitalization)
  Sender: FDA-Public Use
  Company Number: US-BIOGENIDEC-2007BI004510

PATIENT
  Age: 37 Year
  Sex: Female

DRUGS (3)
  1. AVONEX [Suspect]
     Indication: MULTIPLE SCLEROSIS
     Route: 030
     Dates: start: 19960731
  2. AVONEX [Suspect]
     Route: 030
     Dates: end: 20080501
  3. PREDNISONE [Concomitant]
     Indication: DRUG USE FOR UNKNOWN INDICATION
     Route: 048

REACTIONS (13)
  - CENTRAL VENOUS CATHETERISATION [None]
  - FALL [None]
  - HYPERTENSION [None]
  - INFECTION [None]
  - INFLUENZA LIKE ILLNESS [None]
  - INTESTINAL OBSTRUCTION [None]
  - NEUROGENIC BLADDER [None]
  - PYREXIA [None]
  - SEPSIS [None]
  - SKIN LESION [None]
  - STAPHYLOCOCCAL INFECTION [None]
  - THYROID DISORDER [None]
  - TOOTH DISORDER [None]
